FAERS Safety Report 18392294 (Version 2)
Quarter: 2020Q4

REPORT INFORMATION
  Report Type: Spontaneous
  Country: BR (occurrence: BR)
  Receive Date: 20201016
  Receipt Date: 20201030
  Transmission Date: 20210114
  Serious: Yes (Other)
  Sender: FDA-Public Use
  Company Number: BR-JNJFOC-20201024501

PATIENT
  Age: 76 Year
  Sex: Female

DRUGS (3)
  1. PURAN [Concomitant]
     Active Substance: LEVOTHYROXINE SODIUM
     Indication: HYPOTHYROIDISM
  2. PHENOBARBITAL. [Concomitant]
     Active Substance: PHENOBARBITAL
  3. RIVAROXABAN [Suspect]
     Active Substance: RIVAROXABAN
     Indication: THROMBOSIS
     Dosage: 2.5 MG, QD (AT BREAKFAST)
     Route: 048
     Dates: start: 20201007

REACTIONS (4)
  - Incorrect dose administered [Unknown]
  - Drug ineffective [Unknown]
  - Traumatic haemorrhage [Recovered/Resolved]
  - Limb injury [Recovered/Resolved]

NARRATIVE: CASE EVENT DATE: 202010
